FAERS Safety Report 18217486 (Version 2)
Quarter: 2020Q3

REPORT INFORMATION
  Report Type: Spontaneous
  Country: DE (occurrence: DE)
  Receive Date: 20200901
  Receipt Date: 20200924
  Transmission Date: 20201103
  Serious: Yes (Death, Other)
  Sender: FDA-Public Use
  Company Number: NVSC2020DE235138

PATIENT
  Age: 66 Year
  Sex: Male
  Weight: 70.4 kg

DRUGS (17)
  1. CARBOPLATIN. [Suspect]
     Active Substance: CARBOPLATIN
     Indication: IMMUNOCHEMOTHERAPY
     Dosage: 5 MG/M2 (DAY 1 AND REPETITION ON DAY 21)
     Route: 065
     Dates: start: 20200615, end: 20200622
  2. DOCETAXEL. [Suspect]
     Active Substance: DOCETAXEL
     Indication: NEOPLASM RECURRENCE
     Dosage: UNK
     Route: 065
  3. CISPLATIN. [Suspect]
     Active Substance: CISPLATIN
     Indication: NEOPLASM RECURRENCE
     Dosage: UNK (CONSOLIDATING RADIOCHEMOTHERAPY)
     Route: 065
     Dates: start: 201912
  4. OLIMEL [Suspect]
     Active Substance: AMINO ACIDS\DEXTROSE\SOYBEAN OIL
     Indication: PARENTERAL NUTRITION
     Dosage: 10000 ML, QD
     Route: 042
     Dates: start: 20200713
  5. CETUXIMAB. [Suspect]
     Active Substance: CETUXIMAB
     Indication: NEOPLASM RECURRENCE
     Dosage: 250 MG/M2, TIW (DAY 8)
     Route: 065
     Dates: start: 20190830
  6. CISPLATIN. [Suspect]
     Active Substance: CISPLATIN
     Indication: METASTATIC NEOPLASM
     Dosage: 75 MG/M (DAY 1 )
     Route: 065
     Dates: start: 201908
  7. OLIMEL [Suspect]
     Active Substance: AMINO ACIDS\DEXTROSE\SOYBEAN OIL
     Dosage: 1500 ML, QD (DRUG REINTRODUCED AND DISCONTINUED)
     Route: 042
     Dates: start: 20200728, end: 20200728
  8. CETUXIMAB. [Suspect]
     Active Substance: CETUXIMAB
     Dosage: 400 MG, TIW (LOADING DOSE; DAY 1)
     Route: 065
  9. CETUXIMAB. [Suspect]
     Active Substance: CETUXIMAB
     Dosage: UNK (CONTINUATION OF CHEMOTHERAPY ON DAY 6 OF FIRST CYCLE)
     Route: 065
     Dates: start: 201909
  10. FLUOROURACIL. [Suspect]
     Active Substance: FLUOROURACIL
     Indication: IMMUNOCHEMOTHERAPY
     Dosage: UNK (OVER 96 HOURS)
     Route: 065
     Dates: start: 20200615, end: 20200622
  11. CETUXIMAB. [Suspect]
     Active Substance: CETUXIMAB
     Indication: METASTATIC NEOPLASM
     Dosage: 250 MG/M2, TIW (DAY 15)
     Route: 065
  12. OLIMEL [Suspect]
     Active Substance: AMINO ACIDS\DEXTROSE\SOYBEAN OIL
     Dosage: 1500 MI, QD (INFUSION RUNS FROM 18:00 HOURS TO 06:00 HOURS, DOSE INCREASED)
     Route: 042
     Dates: start: 20200720, end: 20200727
  13. CERNEVIT [Suspect]
     Active Substance: VITAMINS
     Indication: PARENTERAL NUTRITION
     Dosage: 750 MG, QD (ROUTE: CENTRAL VENOUS)
     Route: 042
     Dates: start: 20200713, end: 20200728
  14. CLEXANE [Suspect]
     Active Substance: ENOXAPARIN SODIUM
     Indication: ANTICOAGULANT THERAPY
     Dosage: UNK (SHOULD BE PAUSED ONE DAY BEFORE PORT INSTALLEMENT ON 07JUL)
     Route: 065
  15. ATENOLOL. [Suspect]
     Active Substance: ATENOLOL
     Indication: PRODUCT USED FOR UNKNOWN INDICATION
     Dosage: UNK
     Route: 065
  16. DOCETAXEL. [Suspect]
     Active Substance: DOCETAXEL
     Indication: METASTATIC NEOPLASM
     Dosage: 75 MG/M2
     Route: 065
     Dates: start: 201908
  17. PEMBROLIZUMAB. [Suspect]
     Active Substance: PEMBROLIZUMAB
     Indication: IMMUNOCHEMOTHERAPY
     Dosage: 200 MG
     Route: 065
     Dates: start: 20200615, end: 20200622

REACTIONS (10)
  - Eye movement disorder [Fatal]
  - Peripheral coldness [Fatal]
  - Pyrexia [Fatal]
  - Chills [Fatal]
  - Tremor [Fatal]
  - Cold sweat [Fatal]
  - Unresponsive to stimuli [Fatal]
  - Death [Fatal]
  - Pneumonia pneumococcal [Fatal]
  - Tachycardia [Fatal]

NARRATIVE: CASE EVENT DATE: 20200726
